FAERS Safety Report 14047909 (Version 2)
Quarter: 2017Q4

REPORT INFORMATION
  Report Type: Spontaneous
  Country: US (occurrence: US)
  Receive Date: 20171005
  Receipt Date: 20171121
  Transmission Date: 20180321
  Serious: Yes (Hospitalization)
  Sender: FDA-Public Use
  Company Number: US-JNJFOC-20170920910

PATIENT
  Sex: Female

DRUGS (2)
  1. XARELTO [Suspect]
     Active Substance: RIVAROXABAN
     Indication: CARDIAC MURMUR
     Route: 048
     Dates: start: 2010, end: 2017
  2. XARELTO [Suspect]
     Active Substance: RIVAROXABAN
     Indication: CARDIAC MURMUR
     Route: 048
     Dates: start: 2017, end: 20170914

REACTIONS (4)
  - Product use in unapproved indication [Unknown]
  - Off label use [Unknown]
  - Internal haemorrhage [Unknown]
  - Renal disorder [Unknown]

NARRATIVE: CASE EVENT DATE: 2010
